FAERS Safety Report 7609596-X (Version None)
Quarter: 2011Q3

REPORT INFORMATION
  Report Type: 
  Country: None (occurrence: None)
  Receive Date: 20110714
  Receipt Date: 20110712
  Transmission Date: 20111222
  Serious: Yes (Hospitalization)
  Sender: FDA-Public Use
  Company Number: IE-PFIZER INC-2011111653

PATIENT
  Age: 66 Year
  Sex: Female

DRUGS (4)
  1. LIPITOR [Suspect]
     Dosage: 10 MG, UNK
  2. PERINDOPRIL [Concomitant]
  3. ASPIRIN [Concomitant]
     Dosage: 300 UNK, UNK
  4. ZOLPIDEM TARTRATE [Concomitant]
     Indication: SLEEP DISORDER

REACTIONS (2)
  - ABNORMAL DREAMS [None]
  - NIGHTMARE [None]
